FAERS Safety Report 16937467 (Version 4)
Quarter: 2019Q4

REPORT INFORMATION
  Report Type: Report from Study
  Country: US (occurrence: US)
  Receive Date: 20191018
  Receipt Date: 20191224
  Transmission Date: 20200122
  Serious: Yes (Hospitalization, Other)
  Sender: FDA-Public Use
  Company Number: US-PFIZER INC-2019444819

PATIENT
  Age: 19 Year
  Sex: Male
  Weight: 90.3 kg

DRUGS (7)
  1. MERCAPTOPURINE. [Suspect]
     Active Substance: MERCAPTOPURINE
     Indication: LEUKAEMIA
     Dosage: 150 MG, TABLET, DAYS 1-84
     Route: 048
     Dates: start: 20180614
  2. PREDNISONE. [Suspect]
     Active Substance: PREDNISONE
     Indication: LEUKAEMIA
     Dosage: 40 MG, TABLET, 2X/DAY FOR 5 DAYS
     Route: 048
     Dates: start: 20170713
  3. METHOTREXATE. [Suspect]
     Active Substance: METHOTREXATE
     Indication: LEUKAEMIA
     Dosage: 40 MG, TABLET, DAYS 8, 15, 22, 29, 36, 43, 50, 56, 64, 71, 78
     Route: 048
     Dates: start: 20180614
  4. PENTAMIDINE [Concomitant]
     Active Substance: PENTAMIDINE
     Dosage: UNK
     Dates: start: 20180518
  5. METHOTREXATE SODIUM. [Suspect]
     Active Substance: METHOTREXATE SODIUM
     Indication: LEUKAEMIA
     Dosage: 15 MG, DAY 1
     Route: 037
     Dates: start: 20170822, end: 20190808
  6. INCB018424 [Suspect]
     Active Substance: RUXOLITINIB
     Indication: LEUKAEMIA
     Dosage: 100 MG, TABLET, 2X/DAY DAYS 1-4, 29-42, 57-70
     Route: 048
     Dates: start: 20170822
  7. VINCRISTINE SULFATE. [Suspect]
     Active Substance: VINCRISTINE SULFATE
     Indication: LEUKAEMIA
     Dosage: 2 MG, DAYS 1, 29, 57
     Route: 042
     Dates: start: 20170905

REACTIONS (2)
  - Pyrexia [Recovered/Resolved]
  - Mucosal inflammation [Recovered/Resolved]

NARRATIVE: CASE EVENT DATE: 20190923
